FAERS Safety Report 18435699 (Version 4)
Quarter: 2021Q3

REPORT INFORMATION
  Report Type: Report from Study
  Country: BR (occurrence: BR)
  Receive Date: 20201028
  Receipt Date: 20210721
  Transmission Date: 20211014
  Serious: Yes (Other)
  Sender: FDA-Public Use
  Company Number: PHHY2019BR006184

PATIENT
  Age: 43 Year
  Sex: Female
  Weight: 64 kg

DRUGS (9)
  1. COSENTYX [Suspect]
     Active Substance: SECUKINUMAB
     Dosage: 300 MG, QMO
     Route: 058
     Dates: start: 20181222
  2. RIVOTRIL [Concomitant]
     Active Substance: CLONAZEPAM
     Indication: ANXIETY
     Dosage: 5 DRP, QN (LIQUID FORMULATION FIVE DROPS AT NIGHT)
     Route: 048
  3. COSENTYX [Suspect]
     Active Substance: SECUKINUMAB
     Dosage: UNK
     Route: 065
     Dates: start: 20200320
  4. SERTRALINE [Concomitant]
     Active Substance: SERTRALINE HYDROCHLORIDE
     Indication: CRYING
     Dosage: 10 MG, QD
     Route: 048
     Dates: start: 201903
  5. COSENTYX [Suspect]
     Active Substance: SECUKINUMAB
     Dosage: 300 MG, UNKNOWN
     Route: 065
     Dates: start: 20210515
  6. COSENTYX [Suspect]
     Active Substance: SECUKINUMAB
     Dosage: UNK
     Route: 065
     Dates: start: 20210415
  7. COSENTYX [Suspect]
     Active Substance: SECUKINUMAB
     Indication: PSORIASIS
     Dosage: UNK
     Route: 058
     Dates: start: 20181219
  8. COSENTYX [Suspect]
     Active Substance: SECUKINUMAB
     Dosage: 300 MG, QMO (150 MG TWO INJECTIONS)
     Route: 058
  9. FLUOXETINE [Concomitant]
     Active Substance: FLUOXETINE HYDROCHLORIDE
     Indication: CRYING
     Dosage: 20 MG, QD
     Route: 048
     Dates: start: 201903

REACTIONS (27)
  - Psoriatic arthropathy [Unknown]
  - Abdominal distension [Unknown]
  - Mass [Not Recovered/Not Resolved]
  - Gastritis [Recovering/Resolving]
  - Retching [Recovering/Resolving]
  - Decreased appetite [Unknown]
  - Diarrhoea [Unknown]
  - Arthralgia [Not Recovered/Not Resolved]
  - Gastrointestinal infection [Recovered/Resolved]
  - Haemorrhoids [Recovered/Resolved]
  - Blood pressure decreased [Not Recovered/Not Resolved]
  - Drug ineffective [Unknown]
  - Concomitant disease aggravated [Unknown]
  - Pruritus [Not Recovered/Not Resolved]
  - Peripheral swelling [Recovering/Resolving]
  - Swelling [Recovered/Resolved]
  - Skin lesion [Not Recovered/Not Resolved]
  - Nodule [Recovered/Resolved]
  - Skin mass [Recovered/Resolved]
  - Contusion [Unknown]
  - Visual impairment [Unknown]
  - Dyspepsia [Recovering/Resolving]
  - Product dose omission issue [Unknown]
  - Wound [Not Recovered/Not Resolved]
  - Thyroid disorder [Not Recovered/Not Resolved]
  - Laboratory test abnormal [Unknown]
  - Illness [Unknown]

NARRATIVE: CASE EVENT DATE: 20181222
